FAERS Safety Report 19283476 (Version 1)
Quarter: 2021Q2

REPORT INFORMATION
  Report Type: Spontaneous
  Country: CA (occurrence: CA)
  Receive Date: 20210521
  Receipt Date: 20210521
  Transmission Date: 20210717
  Serious: Yes (Life-Threatening, Hospitalization)
  Sender: FDA-Public Use
  Company Number: CA-AUROBINDO-AUR-APL-2019-086918

PATIENT
  Sex: Male

DRUGS (11)
  1. METHADONE [Interacting]
     Active Substance: METHADONE HYDROCHLORIDE
     Indication: DRUG ABUSER
     Dosage: 50 MILLIGRAM
     Route: 048
  2. FOLIC ACID. [Concomitant]
     Active Substance: FOLIC ACID
     Indication: PRODUCT USED FOR UNKNOWN INDICATION
     Dosage: 5 MILLIGRAM
     Route: 048
  3. MORPHINE [Concomitant]
     Active Substance: MORPHINE
     Dosage: 2 MILLIGRAM, EVERY HOUR
     Route: 042
  4. ACETAMINOPHEN;CODEINE [Concomitant]
     Active Substance: ACETAMINOPHEN\CODEINE PHOSPHATE
     Indication: PRODUCT USED FOR UNKNOWN INDICATION
     Dosage: OR TWO TABLETS, EVERY FOUR HOURS AS NEEDED
     Route: 048
  5. CLINDAMYCIN. [Suspect]
     Active Substance: CLINDAMYCIN
     Indication: PNEUMONIA ASPIRATION
     Dosage: 600 MILLIGRAM, 3 TIMES A DAY
     Route: 042
  6. MORPHINE [Concomitant]
     Active Substance: MORPHINE
     Indication: PAIN
     Dosage: 10 MILLIGRAM 3 HOURLY AS NEEDED
     Route: 048
  7. MORPHINE [Concomitant]
     Active Substance: MORPHINE
     Dosage: 10 MILLIGRAM 3 HOURLY AS NEEDED
     Route: 058
  8. THIAMINE. [Concomitant]
     Active Substance: THIAMINE
     Indication: PRODUCT USED FOR UNKNOWN INDICATION
     Dosage: 100 MILLIGRAM
     Route: 048
  9. METHOTRIMEPRAZINE [Concomitant]
     Active Substance: LEVOMEPROMAZINE
     Indication: PRODUCT USED FOR UNKNOWN INDICATION
     Dosage: 15 MILLIGRAM, ONCE A DAY
     Route: 065
  10. CIPROFLOXACIN. [Suspect]
     Active Substance: CIPROFLOXACIN
     Indication: PNEUMONIA ASPIRATION
     Dosage: 400 MILLIGRAM, TWO TIMES A DAY
     Route: 042
  11. DALTEPARIN [Concomitant]
     Active Substance: DALTEPARIN
     Indication: PRODUCT USED FOR UNKNOWN INDICATION
     Dosage: UNK
     Route: 058

REACTIONS (2)
  - Respiratory depression [Recovered/Resolved]
  - Drug interaction [Recovered/Resolved]
